FAERS Safety Report 4611926-8 (Version None)
Quarter: 2005Q2

REPORT INFORMATION
  Report Type: 
  Country: None (occurrence: None)
  Receive Date: 20050308
  Receipt Date: 20041214
  Transmission Date: 20051028
  Serious: Yes (Other)
  Sender: FDA-Public Use
  Company Number: 2004UW25400

PATIENT
  Age: 78 Year
  Sex: Female
  Weight: 61.234 kg

DRUGS (4)
  1. CRESTOR [Suspect]
     Indication: BLOOD CHOLESTEROL INCREASED
     Dosage: MG PO
     Route: 048
     Dates: start: 20040726
  2. CARDIZEM CD [Concomitant]
  3. SYNTHROID [Concomitant]
  4. LIPITOR [Concomitant]

REACTIONS (3)
  - HAIR TEXTURE ABNORMAL [None]
  - PRURITUS [None]
  - RASH [None]
